FAERS Safety Report 16000633 (Version 4)
Quarter: 2019Q1

REPORT INFORMATION
  Report Type: Spontaneous
  Country: US (occurrence: US)
  Receive Date: 20190225
  Receipt Date: 20190326
  Transmission Date: 20190418
  Serious: Yes (Other)
  Sender: FDA-Public Use
  Company Number: US-PFIZER INC-2019076272

PATIENT
  Age: 58 Year
  Sex: Female

DRUGS (1)
  1. AMLODIPINE BESILATE [Suspect]
     Active Substance: AMLODIPINE BESYLATE
     Dosage: 5 MG, DAILY

REACTIONS (8)
  - Migraine [Unknown]
  - Loss of consciousness [Unknown]
  - Diarrhoea [Unknown]
  - Malaise [Unknown]
  - Drug ineffective [Unknown]
  - Vomiting [Unknown]
  - Cough [Unknown]
  - Hypertension [Unknown]
